FAERS Safety Report 8947475 (Version 3)
Quarter: 2013Q1

REPORT INFORMATION
  Report Type: Spontaneous
  Country: DE (occurrence: DE)
  Receive Date: 20121205
  Receipt Date: 20130115
  Transmission Date: 20140127
  Serious: Yes (Death, Life-Threatening, Hospitalization)
  Sender: FDA-Public Use
  Company Number: DE-INCYTE CORPORATION-2012IN002470

PATIENT
  Sex: 0

DRUGS (6)
  1. JAKAVI [Suspect]
     Indication: MYELOFIBROSIS
     Dosage: 10 MG, QD
     Route: 048
     Dates: start: 20121109, end: 2012
  2. JAKAVI [Suspect]
     Indication: SPLENOMEGALY
     Dosage: 10 MG, QD
     Route: 048
     Dates: start: 2012, end: 20121224
  3. PREDNISOLONE [Concomitant]
     Dosage: UNK
     Dates: start: 201207
  4. PANTOPRAZOLE [Concomitant]
  5. METOPROLOL [Concomitant]
  6. REMERGIL [Concomitant]

REACTIONS (9)
  - Blast cell crisis [Fatal]
  - Tumour lysis syndrome [Recovered/Resolved]
  - Renal disorder [Unknown]
  - Blood lactate dehydrogenase increased [Unknown]
  - Blood creatinine increased [Unknown]
  - Blood uric acid increased [Unknown]
  - Blood potassium increased [Recovered/Resolved]
  - Renal failure acute [Recovered/Resolved]
  - General physical health deterioration [Unknown]
